FAERS Safety Report 12178183 (Version 16)
Quarter: 2017Q4

REPORT INFORMATION
  Report Type: Report from Study
  Country: CA (occurrence: CA)
  Receive Date: 20160315
  Receipt Date: 20171120
  Transmission Date: 20180320
  Serious: Yes (Hospitalization, Other)
  Sender: FDA-Public Use
  Company Number: CA-ROCHE-1238238

PATIENT
  Age: 65 Year
  Sex: Female
  Weight: 76 kg

DRUGS (14)
  1. ACTEMRA [Suspect]
     Active Substance: TOCILIZUMAB
     Indication: RHEUMATOID ARTHRITIS
     Route: 042
     Dates: start: 20130515, end: 20161026
  2. SYNTHROID [Concomitant]
     Active Substance: LEVOTHYROXINE SODIUM
  3. EFFEXOR [Concomitant]
     Active Substance: VENLAFAXINE HYDROCHLORIDE
  4. IMOVANE [Concomitant]
     Active Substance: ZOPICLONE
     Dosage: SLEEPING AID
     Route: 065
  5. OXYCONTIN [Concomitant]
     Active Substance: OXYCODONE HYDROCHLORIDE
  6. METHOTREXATE. [Concomitant]
     Active Substance: METHOTREXATE
  7. ACTEMRA [Suspect]
     Active Substance: TOCILIZUMAB
     Route: 058
     Dates: start: 2017
  8. VENTOLIN [Concomitant]
     Active Substance: ALBUTEROL SULFATE
     Route: 065
  9. FOLIC ACID. [Concomitant]
     Active Substance: FOLIC ACID
  10. METOPROLOL. [Concomitant]
     Active Substance: METOPROLOL
  11. CALTRATE [Concomitant]
     Active Substance: CALCIUM CARBONATE
  12. ACTEMRA [Suspect]
     Active Substance: TOCILIZUMAB
     Route: 042
     Dates: start: 20150507, end: 20161026
  13. ACTEMRA [Suspect]
     Active Substance: TOCILIZUMAB
     Indication: RHEUMATOID ARTHRITIS
     Route: 058
     Dates: start: 20161201
  14. NORVASC [Concomitant]
     Active Substance: AMLODIPINE BESYLATE

REACTIONS (17)
  - Chronic obstructive pulmonary disease [Not Recovered/Not Resolved]
  - Drug hypersensitivity [Unknown]
  - Staphylococcal infection [Not Recovered/Not Resolved]
  - Cellulitis [Recovered/Resolved]
  - Sinusitis [Unknown]
  - Pneumonia [Unknown]
  - Coronary artery occlusion [Unknown]
  - Injection site bruising [Not Recovered/Not Resolved]
  - Upper respiratory tract infection [Unknown]
  - Injection site pain [Not Recovered/Not Resolved]
  - Rash [Recovering/Resolving]
  - Malaise [Not Recovered/Not Resolved]
  - Syringe issue [Unknown]
  - Bronchitis [Recovered/Resolved]
  - Nasopharyngitis [Unknown]
  - Dyspnoea [Unknown]
  - Needle issue [Unknown]

NARRATIVE: CASE EVENT DATE: 201510
